FAERS Safety Report 5000251-1 (Version None)
Quarter: 2006Q2

REPORT INFORMATION
  Report Type: 
  Country: None (occurrence: None)
  Receive Date: 20060511
  Receipt Date: 20051013
  Transmission Date: 20061013
  Serious: Yes (Hospitalization, Other)
  Sender: FDA-Public Use
  Company Number: US-MERCK-0510USA07424

PATIENT
  Age: 49 Year
  Sex: Male
  Weight: 76 kg

DRUGS (12)
  1. VIOXX [Suspect]
     Indication: NECK PAIN
     Route: 048
     Dates: start: 20001226, end: 20040726
  2. VIOXX [Suspect]
     Indication: PAIN IN EXTREMITY
     Route: 048
     Dates: start: 20001226, end: 20040726
  3. METOPROLOL [Concomitant]
     Indication: CARDIAC DISORDER
     Route: 065
     Dates: start: 20000129
  4. NORVASC [Concomitant]
     Indication: ANGINA PECTORIS
     Route: 065
     Dates: start: 20000208
  5. NORVASC [Concomitant]
     Indication: CARDIAC DISORDER
     Route: 065
     Dates: start: 20000208
  6. ZOCOR [Concomitant]
     Indication: CARDIAC DISORDER
     Route: 048
     Dates: start: 20001122, end: 20020513
  7. ASPIRIN [Concomitant]
     Route: 048
  8. PLAVIX [Concomitant]
     Indication: ANTICOAGULANT THERAPY
     Route: 065
     Dates: start: 19990618, end: 20011021
  9. PLAVIX [Concomitant]
     Indication: CEREBROVASCULAR ACCIDENT PROPHYLAXIS
     Route: 065
     Dates: start: 19990618, end: 20011021
  10. ENALAPRIL MALEATE [Concomitant]
     Indication: HYPERTENSION
     Route: 065
     Dates: start: 20001003
  11. PRAVACHOL [Concomitant]
     Indication: HYPERCHOLESTEROLAEMIA
     Route: 065
     Dates: start: 20000627, end: 20001003
  12. VASOTEC [Concomitant]
     Indication: HYPERTENSION
     Route: 048
     Dates: start: 20000314

REACTIONS (9)
  - ANXIETY [None]
  - ASTHENIA [None]
  - CALCULUS URETERIC [None]
  - CARDIAC DISORDER [None]
  - CHEST PAIN [None]
  - DIZZINESS [None]
  - DYSPNOEA [None]
  - HEART RATE INCREASED [None]
  - MYOCARDIAL INFARCTION [None]
